FAERS Safety Report 8321488-X (Version None)
Quarter: 2012Q2

REPORT INFORMATION
  Report Type: 
  Country: None (occurrence: None)
  Receive Date: 20120430
  Receipt Date: 20120430
  Transmission Date: 20120825
  Serious: No
  Sender: FDA-Public Use
  Company Number: None

PATIENT
  Age: 46 Year
  Sex: Male
  Weight: 95.254 kg

DRUGS (1)
  1. METHYLPREDNISOLONE [Suspect]
     Indication: BACK INJURY
     Dosage: 48MG
     Dates: start: 20110818, end: 20110823

REACTIONS (1)
  - INSOMNIA [None]
